FAERS Safety Report 12729210 (Version 1)
Quarter: 2016Q3

REPORT INFORMATION
  Report Type: Spontaneous
  Country: IT (occurrence: IT)
  Receive Date: 20160909
  Receipt Date: 20160909
  Transmission Date: 20161109
  Serious: Yes (Hospitalization)
  Sender: FDA-Public Use
  Company Number: IT-PFIZER INC-2016420009

PATIENT
  Age: 58 Year
  Sex: Male

DRUGS (6)
  1. PANTOPRAZOLE SODIUM. [Concomitant]
     Active Substance: PANTOPRAZOLE SODIUM
     Dosage: UNK
     Route: 048
  2. GAVISCON [Concomitant]
     Active Substance: ALUMINUM HYDROXIDE\MAGNESIUM CARBONATE
     Dosage: UNK
     Route: 048
  3. ZOLOFT [Concomitant]
     Active Substance: SERTRALINE HYDROCHLORIDE
     Dosage: UNK
     Route: 048
  4. MIRTAZAPINE. [Concomitant]
     Active Substance: MIRTAZAPINE
     Dosage: UNK
     Route: 048
  5. VALIUM [Suspect]
     Active Substance: DIAZEPAM
     Dosage: 20 ML, TOTAL
     Route: 048
     Dates: start: 20160812, end: 20160812
  6. XANAX [Suspect]
     Active Substance: ALPRAZOLAM
     Dosage: 20 ML, DAILY
     Route: 048
     Dates: start: 20160812, end: 20160812

REACTIONS (3)
  - Toxicity to various agents [Unknown]
  - Drug abuse [Unknown]
  - Suicide attempt [Unknown]

NARRATIVE: CASE EVENT DATE: 20160812
